FAERS Safety Report 6286587-5 (Version None)
Quarter: 2009Q3

REPORT INFORMATION
  Report Type: 
  Country: None (occurrence: None)
  Receive Date: 20090724
  Receipt Date: 20090721
  Transmission Date: 20100115
  Serious: Yes (Other)
  Sender: FDA-Public Use
  Company Number: GXKR2009DE08272

PATIENT
  Sex: Male

DRUGS (2)
  1. LOPEDIUM AKUT BEI AKUTEM DURCHFALL (NGX) (LOPERAMIDE) UNKNOWN [Suspect]
  2. LOPERAMIDE [Suspect]

REACTIONS (1)
  - INTENTIONAL DRUG MISUSE [None]
